FAERS Safety Report 11071332 (Version 9)
Quarter: 2016Q1

REPORT INFORMATION
  Report Type: Spontaneous
  Country: US (occurrence: US)
  Receive Date: 20150428
  Receipt Date: 20160317
  Transmission Date: 20160525
  Serious: Yes (Death, Hospitalization, Other)
  Sender: FDA-Public Use
  Company Number: US-GLAXOSMITHKLINE-US2015GSK055447

PATIENT
  Age: 64 Year
  Sex: Female

DRUGS (9)
  1. FLOLAN [Suspect]
     Active Substance: EPOPROSTENOL SODIUM
     Dosage: 21.5 NG/KG/MIN
  2. FLOLAN [Suspect]
     Active Substance: EPOPROSTENOL SODIUM
     Indication: POSTPARTUM HAEMORRHAGE
     Dosage: 6 NG/KG/MIN CONCENTRATION 10,000 NG/ML PUMP RATE 55 ML/DAY VIAL STRENGTH 0.5 MG
     Route: 042
  3. FLOLAN [Suspect]
     Active Substance: EPOPROSTENOL SODIUM
     Dosage: UNK, CO
     Dates: start: 20150401
  4. REVATIO [Concomitant]
     Active Substance: SILDENAFIL CITRATE
     Indication: PRODUCT USED FOR UNKNOWN INDICATION
     Dosage: UNK
  5. FLOLAN [Suspect]
     Active Substance: EPOPROSTENOL SODIUM
     Indication: PULMONARY ARTERIAL HYPERTENSION
     Dosage: 3 NG/KG/MIN CONCENTRATION 5,000 NG/ML PUMP RATE 55 ML/DAY VIAL  STRENGTH 0.5
     Route: 042
     Dates: start: 20150413
  6. FLOLAN [Suspect]
     Active Substance: EPOPROSTENOL SODIUM
     Dosage: UNK, CO
     Dates: start: 20150413
  7. FLOLAN [Suspect]
     Active Substance: EPOPROSTENOL SODIUM
     Dosage: 20 NG/KG/MIN, CO
     Route: 042
  8. FLOLAN [Suspect]
     Active Substance: EPOPROSTENOL SODIUM
     Dosage: 21.5 NG/KG/MIN,(CONCENTRATION 30,000 NG/ML)
  9. SILDENAFIL. [Concomitant]
     Active Substance: SILDENAFIL

REACTIONS (19)
  - Nausea [Unknown]
  - Flushing [Unknown]
  - Death [Fatal]
  - Urinary tract infection [Unknown]
  - Pyrexia [Unknown]
  - Rash [Recovered/Resolved]
  - Infusion site pruritus [Unknown]
  - Device use error [Unknown]
  - Fluid overload [Unknown]
  - Pain in extremity [Unknown]
  - Decreased appetite [Unknown]
  - Pain in jaw [Unknown]
  - Device kink [Unknown]
  - Skin reaction [Unknown]
  - Headache [Unknown]
  - Retching [Unknown]
  - Pulmonary hypertension [Unknown]
  - Pulmonary arterial hypertension [Unknown]
  - Diarrhoea [Unknown]

NARRATIVE: CASE EVENT DATE: 201504
